FAERS Safety Report 7443737-2 (Version None)
Quarter: 2011Q2

REPORT INFORMATION
  Report Type: 
  Country: None (occurrence: None)
  Receive Date: 20110428
  Receipt Date: 20101001
  Transmission Date: 20111010
  Serious: No
  Sender: FDA-Public Use
  Company Number: US-BAUSCH-2010BL005567

PATIENT
  Age: 72 Year
  Sex: Female

DRUGS (8)
  1. LIPITOR [Concomitant]
  2. GUANIDINE [Concomitant]
  3. DIOVAN [Concomitant]
  4. ATENOLOL [Concomitant]
  5. GLYBURIDE [Concomitant]
  6. ASPIRIN [Concomitant]
  7. ALREX [Suspect]
     Indication: POSTOPERATIVE CARE
     Route: 047
     Dates: start: 20101001, end: 20101001
  8. PLAVIX [Concomitant]

REACTIONS (1)
  - DIZZINESS [None]
